FAERS Safety Report 13423529 (Version 3)
Quarter: 2017Q2

REPORT INFORMATION
  Report Type: Spontaneous
  Country: US (occurrence: US)
  Receive Date: 20170410
  Receipt Date: 20170613
  Transmission Date: 20170830
  Serious: No
  Sender: FDA-Public Use
  Company Number: US-PFIZER INC-2017152174

PATIENT
  Age: 41 Year
  Sex: Female

DRUGS (1)
  1. DILANTIN [Suspect]
     Active Substance: PHENYTOIN
     Indication: SEIZURE
     Dosage: 400 MG, 2X/DAY
     Dates: start: 198611

REACTIONS (1)
  - Viral upper respiratory tract infection [Recovered/Resolved]

NARRATIVE: CASE EVENT DATE: 20170407
